FAERS Safety Report 6825321-4 (Version None)
Quarter: 2010Q3

REPORT INFORMATION
  Report Type: 
  Country: None (occurrence: None)
  Receive Date: 20100708
  Receipt Date: 20061230
  Transmission Date: 20110219
  Serious: No
  Sender: FDA-Public Use
  Company Number: US-PFIZER INC-2007001465

PATIENT
  Sex: Male
  Weight: 74.84 kg

DRUGS (5)
  1. CHANTIX [Suspect]
     Dates: start: 20061220, end: 20061228
  2. ACETAMINOPHEN AND OXYCODONE HCL [Concomitant]
     Indication: BACK PAIN
  3. CARISOPRODOL [Concomitant]
     Indication: BACK PAIN
  4. LOTENSIN [Concomitant]
     Indication: BLOOD PRESSURE
  5. HYDROCHLOROTHIAZIDE [Concomitant]

REACTIONS (4)
  - DECREASED APPETITE [None]
  - NAUSEA [None]
  - POOR QUALITY SLEEP [None]
  - SPEECH DISORDER [None]
